FAERS Safety Report 9138192 (Version 1)
Quarter: 2013Q1

REPORT INFORMATION
  Report Type: Spontaneous
  Country: US (occurrence: US)
  Receive Date: 20130304
  Receipt Date: 20130304
  Transmission Date: 20140127
  Serious: Yes (Death, Disabling)
  Sender: FDA-Public Use
  Company Number: US-CELGENEUS-163-21880-12063693

PATIENT
  Age: 81 None
  Sex: Male
  Weight: 73.8 kg

DRUGS (26)
  1. REVLIMID [Suspect]
     Indication: PLASMA CELL MYELOMA
     Dosage: 5 MILLIGRAM
     Route: 048
     Dates: start: 200805, end: 200903
  2. REVLIMID [Suspect]
     Dosage: 5MG-15MG-10MG
     Route: 048
     Dates: start: 201011, end: 201203
  3. REVLIMID [Suspect]
     Dosage: 25 MILLIGRAM
     Route: 048
     Dates: start: 201205, end: 2013
  4. MELPHALAN [Concomitant]
     Indication: PLASMA CELL MYELOMA
     Route: 065
     Dates: start: 2008, end: 2009
  5. MELPHALAN [Concomitant]
     Route: 065
     Dates: start: 201011, end: 201109
  6. PREDNISONE [Concomitant]
     Indication: PLASMA CELL MYELOMA
     Route: 065
     Dates: start: 2008, end: 2009
  7. PREDNISONE [Concomitant]
     Route: 065
     Dates: start: 201011, end: 201109
  8. VELCADE [Concomitant]
     Indication: PRODUCT USED FOR UNKNOWN INDICATION
     Route: 065
     Dates: start: 20100601
  9. VELCADE [Concomitant]
     Route: 065
     Dates: start: 201203
  10. DEXAMETHASONE [Concomitant]
     Indication: PRODUCT USED FOR UNKNOWN INDICATION
     Dosage: 40 MILLIGRAM
     Route: 065
     Dates: start: 20100601
  11. DEXAMETHASONE [Concomitant]
     Route: 065
     Dates: start: 201203
  12. DEXAMETHASONE [Concomitant]
     Route: 065
     Dates: start: 201205
  13. BIAXIN [Concomitant]
     Indication: PRODUCT USED FOR UNKNOWN INDICATION
     Route: 065
     Dates: start: 201205
  14. CYTOXAN [Concomitant]
     Indication: PRODUCT USED FOR UNKNOWN INDICATION
     Route: 065
     Dates: start: 201203
  15. DOXIL [Concomitant]
     Indication: PRODUCT USED FOR UNKNOWN INDICATION
     Route: 065
     Dates: start: 2012
  16. TRANSFUSION [Concomitant]
     Indication: PRODUCT USED FOR UNKNOWN INDICATION
     Route: 041
     Dates: start: 2012
  17. SEPTRA [Concomitant]
     Indication: PRODUCT USED FOR UNKNOWN INDICATION
     Route: 065
  18. LISINOPRIL [Concomitant]
     Indication: PRODUCT USED FOR UNKNOWN INDICATION
     Route: 048
  19. ACYCLOVIR [Concomitant]
     Indication: PRODUCT USED FOR UNKNOWN INDICATION
     Dosage: 800 MILLIGRAM
     Route: 048
  20. ESZOPICLONE [Concomitant]
     Indication: PRODUCT USED FOR UNKNOWN INDICATION
     Dosage: 2 MILLIGRAM
     Route: 048
  21. ASPIRIN [Concomitant]
     Indication: PRODUCT USED FOR UNKNOWN INDICATION
     Dosage: 325 MILLIGRAM
     Route: 048
  22. LOMOTIL [Concomitant]
     Indication: PRODUCT USED FOR UNKNOWN INDICATION
     Dosage: 2.5MG/0.025MG
     Route: 048
  23. OMEPRAZOLE [Concomitant]
     Indication: PRODUCT USED FOR UNKNOWN INDICATION
     Dosage: 20 MILLIGRAM
     Route: 048
  24. CLOBETASOL [Concomitant]
     Indication: PRODUCT USED FOR UNKNOWN INDICATION
     Route: 061
  25. DIPHENHYD+LIDOCAINE+NYSTATIN [Concomitant]
     Indication: MUCOSAL INFLAMMATION
     Dosage: 5 MILLILITER
     Route: 048
  26. PROMETHAZINE [Concomitant]
     Indication: NAUSEA
     Dosage: 25 MILLIGRAM
     Route: 048

REACTIONS (3)
  - Death [Fatal]
  - Light chain analysis increased [Not Recovered/Not Resolved]
  - Rash [Recovered/Resolved]
